FAERS Safety Report 18207426 (Version 1)
Quarter: 2020Q3

REPORT INFORMATION
  Report Type: Spontaneous
  Country: US (occurrence: US)
  Receive Date: 20200827
  Receipt Date: 20200827
  Transmission Date: 20201103
  Serious: Yes (Other)
  Sender: FDA-Public Use
  Company Number: None

PATIENT
  Age: 74 Year
  Sex: Female
  Weight: 67.13 kg

DRUGS (1)
  1. MILNACIPRAN HCL (SAVELLA GENERIC) [Suspect]
     Active Substance: MILNACIPRAN HYDROCHLORIDE
     Indication: PAIN
     Dosage: ?          QUANTITY:1 DF DOSAGE FORM;?
     Route: 048
     Dates: start: 20200724, end: 20200801

REACTIONS (19)
  - Pollakiuria [None]
  - Pulmonary congestion [None]
  - Chills [None]
  - Condition aggravated [None]
  - Confusional state [None]
  - Urinary retention [None]
  - Abdominal distension [None]
  - Pain [None]
  - Palpitations [None]
  - Heart rate irregular [None]
  - Headache [None]
  - Nasal congestion [None]
  - Hypertension [None]
  - Ear congestion [None]
  - Vision blurred [None]
  - Urinary hesitation [None]
  - Rhinorrhoea [None]
  - Coordination abnormal [None]
  - Sleep disorder [None]

NARRATIVE: CASE EVENT DATE: 20200724
